FAERS Safety Report 5581914-6 (Version None)
Quarter: 2008Q1

REPORT INFORMATION
  Report Type: 
  Country: None (occurrence: None)
  Receive Date: 20080104
  Receipt Date: 20071226
  Transmission Date: 20080703
  Serious: Yes (Other)
  Sender: FDA-Public Use
  Company Number: US-PFIZER INC-2008000243

PATIENT
  Sex: Male

DRUGS (3)
  1. LIPITOR [Suspect]
  2. TRICOR [Suspect]
  3. ZOCOR [Suspect]

REACTIONS (5)
  - GAIT DISTURBANCE [None]
  - MOBILITY DECREASED [None]
  - MUSCLE DISORDER [None]
  - MUSCULAR WEAKNESS [None]
  - PAIN [None]
